FAERS Safety Report 15981351 (Version 2)
Quarter: 2019Q2

REPORT INFORMATION
  Report Type: Spontaneous
  Country: BR (occurrence: BR)
  Receive Date: 20190219
  Receipt Date: 20190404
  Transmission Date: 20190711
  Serious: Yes (Other)
  Sender: FDA-Public Use
  Company Number: PHHY2019BR038002

PATIENT
  Sex: Female

DRUGS (1)
  1. AMOXICILLIN TRIHYDRATE +POTASSIUM CLAVULANATE [Suspect]
     Active Substance: AMOXICILLIN\CLAVULANATE POTASSIUM
     Indication: PRODUCT USED FOR UNKNOWN INDICATION
     Dosage: UNK
     Route: 065

REACTIONS (5)
  - Oropharyngeal pain [Unknown]
  - Pyrexia [Unknown]
  - Cough [Unknown]
  - Pain [Unknown]
  - Drug ineffective [Unknown]
